FAERS Safety Report 7000281-4 (Version None)
Quarter: 2010Q3

REPORT INFORMATION
  Report Type: 
  Country: None (occurrence: None)
  Receive Date: 20100920
  Receipt Date: 20090924
  Transmission Date: 20110219
  Serious: No
  Sender: FDA-Public Use
  Company Number: US-ASTRAZENECA-2009SE15183

PATIENT
  Age: 40 Year
  Sex: Male
  Weight: 108.9 kg

DRUGS (4)
  1. SEROQUEL [Suspect]
     Indication: INSOMNIA
     Route: 048
     Dates: start: 20080601, end: 20090201
  2. SEROQUEL [Suspect]
     Route: 048
     Dates: start: 20090201
  3. SEROQUEL [Suspect]
     Route: 048
  4. KLONOPIN [Concomitant]

REACTIONS (2)
  - ILL-DEFINED DISORDER [None]
  - URINE ODOUR ABNORMAL [None]
